FAERS Safety Report 22055728 (Version 1)
Quarter: 2023Q1

REPORT INFORMATION
  Report Type: Spontaneous
  Country: JP (occurrence: None)
  Receive Date: 20230302
  Receipt Date: 20230302
  Transmission Date: 20230418
  Serious: Yes (Hospitalization, Other)
  Sender: FDA-Public Use
  Company Number: 2023A044792

PATIENT
  Age: 34 Year
  Sex: Female

DRUGS (2)
  1. OLAPARIB [Suspect]
     Active Substance: OLAPARIB
     Indication: Breast cancer stage IV
     Route: 048
     Dates: start: 201812
  2. OLAPARIB [Suspect]
     Active Substance: OLAPARIB
     Indication: Metastases to lung
     Route: 048
     Dates: start: 201812

REACTIONS (2)
  - Interstitial lung disease [Recovered/Resolved]
  - Anaemia [Unknown]
